FAERS Safety Report 7993452-1 (Version None)
Quarter: 2011Q4

REPORT INFORMATION
  Report Type: 
  Country: None (occurrence: None)
  Receive Date: 20111219
  Receipt Date: 20110323
  Transmission Date: 20120403
  Serious: No
  Sender: FDA-Public Use
  Company Number: US-ASTRAZENECA-2011SE16387

PATIENT
  Age: 63 Year
  Sex: Female

DRUGS (4)
  1. CRESTOR [Suspect]
     Route: 048
     Dates: end: 20100801
  2. NSAID MEDICATION [Concomitant]
     Indication: ARTHRITIS
  3. METOPROLOL [Concomitant]
  4. CRESTOR [Suspect]
     Route: 048
     Dates: start: 20100801, end: 20110322

REACTIONS (3)
  - HEPATIC ENZYME INCREASED [None]
  - LOW DENSITY LIPOPROTEIN INCREASED [None]
  - LOW DENSITY LIPOPROTEIN ABNORMAL [None]
